FAERS Safety Report 9502434 (Version 3)
Quarter: 2013Q4

REPORT INFORMATION
  Report Type: Report from Study
  Country: DE (occurrence: DE)
  Receive Date: 20130906
  Receipt Date: 20131010
  Transmission Date: 20140711
  Serious: Yes (Hospitalization)
  Sender: FDA-Public Use
  Company Number: DE-ROCHE-1269460

PATIENT
  Age: 73 Year
  Sex: Male
  Weight: 80 kg

DRUGS (14)
  1. BEVACIZUMAB [Suspect]
     Indication: COLON CANCER
     Route: 042
     Dates: start: 20130729, end: 20130812
  2. 5-FU [Suspect]
     Indication: COLON CANCER
     Route: 042
     Dates: start: 20130729
  3. ONDANSETRON [Concomitant]
     Indication: PROPHYLAXIS OF NAUSEA AND VOMITING
     Route: 048
     Dates: start: 20130812
  4. PASPERTIN [Concomitant]
     Indication: PROPHYLAXIS OF NAUSEA AND VOMITING
     Route: 048
     Dates: start: 20130812
  5. PANTOZOL (GERMANY) [Concomitant]
     Indication: PROPHYLAXIS
     Route: 048
     Dates: start: 20130812
  6. SIMVASTATIN [Concomitant]
     Indication: HYPERCHOLESTEROLAEMIA
     Route: 048
  7. SIMVASTATIN [Concomitant]
     Route: 048
  8. CORVATON [Concomitant]
     Indication: ANGINA PECTORIS
     Route: 065
     Dates: start: 20130815
  9. CORVATON [Concomitant]
     Indication: CARDIOVASCULAR EVENT PROPHYLAXIS
  10. DELIX (GERMANY) [Concomitant]
     Indication: ANGINA PECTORIS
     Route: 065
     Dates: start: 20130815
  11. DELIX (GERMANY) [Concomitant]
     Indication: CARDIOVASCULAR EVENT PROPHYLAXIS
  12. ISOKET [Concomitant]
     Indication: ANGINA PECTORIS
     Route: 065
     Dates: start: 20130815
  13. ISOKET [Concomitant]
     Indication: CARDIOVASCULAR EVENT PROPHYLAXIS
  14. BELOC-ZOK MITE [Concomitant]
     Indication: HYPERTENSION
     Route: 065
     Dates: start: 20130815

REACTIONS (4)
  - Acute coronary syndrome [Recovered/Resolved]
  - Mucosal inflammation [Recovered/Resolved]
  - Soft tissue infection [Recovered/Resolved]
  - Cerebrovascular accident [Recovering/Resolving]
